FAERS Safety Report 11489367 (Version 1)
Quarter: 2015Q3

REPORT INFORMATION
  Report Type: Spontaneous
  Country: US (occurrence: US)
  Receive Date: 20150909
  Receipt Date: 20150909
  Transmission Date: 20151125
  Serious: No
  Sender: FDA-Public Use
  Company Number: US-JAZZ-2015-US-002426

PATIENT
  Age: 42 Month
  Sex: Female

DRUGS (1)
  1. XYREM [Suspect]
     Active Substance: SODIUM OXYBATE
     Dosage: 5 ML
     Route: 048
     Dates: start: 20150214, end: 20150214

REACTIONS (4)
  - Accidental exposure to product by child [Unknown]
  - Vomiting [Recovered/Resolved]
  - Failure of child resistant mechanism for pharmaceutical product [Unknown]
  - Ill-defined disorder [Unknown]

NARRATIVE: CASE EVENT DATE: 201502
